FAERS Safety Report 8201675-1 (Version None)
Quarter: 2012Q1

REPORT INFORMATION
  Report Type: 
  Country: None (occurrence: None)
  Receive Date: 20120312
  Receipt Date: 20120228
  Transmission Date: 20120608
  Serious: Yes (Life-Threatening)
  Sender: FDA-Public Use
  Company Number: FR-ROCHE-1044196

PATIENT
  Age: 60 Year
  Sex: Male

DRUGS (8)
  1. MYFORTIC [Suspect]
     Indication: IMMUNOSUPPRESSION
     Route: 048
     Dates: start: 20110301, end: 20110601
  2. MABCAMPATH [Suspect]
     Indication: PRODUCT USED FOR UNKNOWN INDICATION
     Route: 042
     Dates: start: 20110729, end: 20110801
  3. CERTICAN [Suspect]
  4. NEORAL [Suspect]
     Indication: IMMUNOSUPPRESSION
     Route: 048
     Dates: start: 20110301, end: 20110601
  5. MABTHERA [Suspect]
     Indication: ACUTE MYELOID LEUKAEMIA
     Route: 042
     Dates: start: 20110701
  6. CERTICAN [Suspect]
     Indication: PRODUCT USED FOR UNKNOWN INDICATION
     Dosage: DOSE DECREASED
     Route: 048
     Dates: start: 20110601, end: 20110801
  7. MABCAMPATH [Suspect]
     Dates: start: 20110811
  8. PROGRAF [Suspect]
     Indication: PRODUCT USED FOR UNKNOWN INDICATION
     Route: 048

REACTIONS (5)
  - LYMPHOMA [None]
  - CYTOMEGALOVIRUS INFECTION [None]
  - BK VIRUS INFECTION [None]
  - PSEUDOMEMBRANOUS COLITIS [None]
  - EPSTEIN-BARR VIRAEMIA [None]
